FAERS Safety Report 9072809 (Version 1)
Quarter: 2013Q1

REPORT INFORMATION
  Report Type: Report from Study
  Country: US (occurrence: US)
  Receive Date: 20130129
  Receipt Date: 20130129
  Transmission Date: 20140127
  Serious: No
  Sender: FDA-Public Use
  Company Number: US-ABBOTT-12P-163-0920433-00

PATIENT
  Age: 57 Year
  Sex: Female

DRUGS (12)
  1. HUMIRA 40 MG/0.8 ML PEN [Suspect]
     Indication: RHEUMATOID ARTHRITIS
     Dates: start: 201111
  2. METHOTREXATE [Concomitant]
     Indication: PRODUCT USED FOR UNKNOWN INDICATION
     Dosage: 2.5  MG X 4 TABS WEEKLY
  3. FOLIC ACID [Concomitant]
     Indication: PRODUCT USED FOR UNKNOWN INDICATION
     Dosage: 1 MG DAILY
  4. PREDNISONE [Concomitant]
     Indication: SWELLING
     Dosage: 5 MG DAILY
  5. CARDIZEM [Concomitant]
     Indication: BLOOD PRESSURE
     Dosage: 300 MG DAILY
  6. UNKNOWN MEDICATION [Concomitant]
     Indication: BLOOD PRESSURE
  7. LESCOL [Concomitant]
     Indication: BLOOD CHOLESTEROL
     Dosage: 80 MG DAILY
  8. TRAZODONE [Concomitant]
     Indication: INSOMNIA
     Dosage: AT BEDTIME
  9. ZOLOFT [Concomitant]
     Indication: DEPRESSION
     Dosage: 50 MG DAILY
  10. ZOLOFT [Concomitant]
     Indication: ANXIETY
  11. CYMBALTA [Concomitant]
     Indication: DEPRESSION
     Dosage: 60 MG DAILY
  12. CYMBALTA [Concomitant]
     Indication: PAIN

REACTIONS (3)
  - Wrong technique in drug usage process [Recovering/Resolving]
  - Pain [Recovering/Resolving]
  - Incorrect dose administered [Recovering/Resolving]
